FAERS Safety Report 7880361-1 (Version None)
Quarter: 2011Q4

REPORT INFORMATION
  Report Type: 
  Country: None (occurrence: None)
  Receive Date: 20111101
  Receipt Date: 20111025
  Transmission Date: 20120403
  Serious: Yes (Other)
  Sender: FDA-Public Use
  Company Number: PHHY2011IT94117

PATIENT
  Sex: Female

DRUGS (3)
  1. ATENOLOL [Suspect]
     Dosage: UNK
  2. LORAZEPAM [Suspect]
     Dosage: UNK
  3. VENLAFAXINE [Suspect]
     Dosage: UNK

REACTIONS (1)
  - SYNCOPE [None]
